FAERS Safety Report 6178439-6 (Version None)
Quarter: 2009Q2

REPORT INFORMATION
  Report Type: 
  Country: None (occurrence: None)
  Receive Date: 20090504
  Receipt Date: 20080422
  Transmission Date: 20091009
  Serious: No
  Sender: FDA-Public Use
  Company Number: US-ALEXION-A200800097

PATIENT

DRUGS (3)
  1. SOLIRIS [Suspect]
     Indication: PAROXYSMAL NOCTURNAL HAEMOGLOBINURIA
     Dosage: 600 MG, SINGLE
     Route: 042
     Dates: start: 20080416, end: 20080416
  2. EXCEDRIN /00509701/ [Concomitant]
     Indication: PREMEDICATION
     Dosage: UNK, Q4H
     Route: 048
     Dates: start: 20080416, end: 20080417
  3. IMITREX /01044801/ [Concomitant]
     Indication: MIGRAINE
     Dosage: UNK, PRN
     Route: 048

REACTIONS (2)
  - HEADACHE [None]
  - NAUSEA [None]
